FAERS Safety Report 17741989 (Version 20)
Quarter: 2025Q3

REPORT INFORMATION
  Report Type: Report from Study
  Country: US (occurrence: US)
  Receive Date: 20200504
  Receipt Date: 20250902
  Transmission Date: 20251020
  Serious: Yes (Other)
  Sender: TAKEDA
  Company Number: US-SHIRE-US202015262

PATIENT
  Age: 58 Year
  Sex: Female
  Weight: 49 kg

DRUGS (33)
  1. HUMAN IMMUNOGLOBULIN G [Suspect]
     Active Substance: HUMAN IMMUNOGLOBULIN G
     Indication: Immunodeficiency common variable
     Dosage: 20 GRAM, Q4WEEKS
     Dates: start: 20200410
  2. HUMAN IMMUNOGLOBULIN G [Suspect]
     Active Substance: HUMAN IMMUNOGLOBULIN G
     Indication: Primary immunodeficiency syndrome
     Dosage: 20 GRAM, Q4WEEKS
     Dates: start: 20200414
  3. HUMAN IMMUNOGLOBULIN G [Suspect]
     Active Substance: HUMAN IMMUNOGLOBULIN G
     Dosage: 18 GRAM, Q4WEEKS
  4. HUMAN IMMUNOGLOBULIN G [Suspect]
     Active Substance: HUMAN IMMUNOGLOBULIN G
  5. EPINEPHRINE [Concomitant]
     Active Substance: EPINEPHRINE
  6. ACETAMINOPHEN [Concomitant]
     Active Substance: ACETAMINOPHEN
  7. VITAMIN C [Concomitant]
     Active Substance: ASCORBIC ACID
  8. VITAMIN B [Concomitant]
     Active Substance: VITAMIN B
  9. TUMS [Concomitant]
     Active Substance: CALCIUM CARBONATE
  10. KLOR-CON [Concomitant]
     Active Substance: POTASSIUM CHLORIDE
  11. NORCO [Concomitant]
     Active Substance: ACETAMINOPHEN\HYDROCODONE BITARTRATE
  12. TRIAMTERENE AND HYDROCHLOROTHIAZIDE [Concomitant]
     Active Substance: HYDROCHLOROTHIAZIDE\TRIAMTERENE
  13. LIDODERM [Concomitant]
     Active Substance: LIDOCAINE
  14. FOLIC ACID [Concomitant]
     Active Substance: FOLIC ACID
  15. MINERALS\VITAMINS [Concomitant]
     Active Substance: MINERALS\VITAMINS
  16. SODIUM CHLORIDE [Concomitant]
     Active Substance: SODIUM CHLORIDE
  17. LINZESS [Concomitant]
     Active Substance: LINACLOTIDE
  18. SOMA [Concomitant]
     Active Substance: CARISOPRODOL
  19. PREMARIN [Concomitant]
     Active Substance: ESTROGENS, CONJUGATED
  20. PREDNISONE [Concomitant]
     Active Substance: PREDNISONE
  21. VITAMIN D3 [Concomitant]
     Active Substance: CHOLECALCIFEROL
  22. MORPHINE SULFATE [Concomitant]
     Active Substance: MORPHINE SULFATE
  23. NEXIUM [Concomitant]
     Active Substance: ESOMEPRAZOLE MAGNESIUM
  24. GABAPENTIN [Concomitant]
     Active Substance: GABAPENTIN
  25. CEVIMELINE HYDROCHLORIDE [Concomitant]
     Active Substance: CEVIMELINE HYDROCHLORIDE
  26. EFFEXOR [Concomitant]
     Active Substance: VENLAFAXINE HYDROCHLORIDE
  27. DIPHENHYDRAMINE [Concomitant]
     Active Substance: DIPHENHYDRAMINE
  28. Lmx [Concomitant]
  29. HYOSCYAMINE SULFATE [Concomitant]
     Active Substance: HYOSCYAMINE SULFATE
  30. CEFUROXIME [Concomitant]
     Active Substance: CEFUROXIME
  31. VALTREX [Concomitant]
     Active Substance: VALACYCLOVIR HYDROCHLORIDE
  32. ASPIRIN [Concomitant]
     Active Substance: ASPIRIN
  33. VITAMIN B6 [Concomitant]
     Active Substance: PYRIDOXINE HYDROCHLORIDE

REACTIONS (27)
  - Renal impairment [Unknown]
  - Uveitis [Unknown]
  - Sepsis [Unknown]
  - Multiple allergies [Not Recovered/Not Resolved]
  - Urinary tract infection [Unknown]
  - Vein disorder [Unknown]
  - Pleurisy [Unknown]
  - Allergic sinusitis [Unknown]
  - Tooth infection [Recovered/Resolved]
  - Memory impairment [Unknown]
  - Seasonal allergy [Unknown]
  - Sinus disorder [Unknown]
  - Iritis [Unknown]
  - Product availability issue [Unknown]
  - Product dose omission issue [Unknown]
  - Pain in extremity [Unknown]
  - Hypersensitivity [Unknown]
  - Blood pressure increased [Unknown]
  - Eyelid disorder [Unknown]
  - Pancreatic disorder [Unknown]
  - Inability to afford medication [Unknown]
  - Poor venous access [Unknown]
  - Fibromyalgia [Unknown]
  - Eye disorder [Unknown]
  - Pain [Unknown]
  - Amnesia [Unknown]
  - Sinusitis [Unknown]

NARRATIVE: CASE EVENT DATE: 20200424
